FAERS Safety Report 17235232 (Version 2)
Quarter: 2020Q1

REPORT INFORMATION
  Report Type: Spontaneous
  Country: US (occurrence: US)
  Receive Date: 20200106
  Receipt Date: 20200120
  Transmission Date: 20200409
  Serious: Yes (Life-Threatening, Disabling)
  Sender: FDA-Public Use
  Company Number: US-TEVA-2020-US-1163128

PATIENT

DRUGS (1)
  1. MELPHALAN. [Suspect]
     Active Substance: MELPHALAN
     Indication: MALIGNANT MELANOMA
     Dosage: 1 MG/KG/BODYWEIGHT INJECTED INTO IN THE ARTERIAL LINE AND CIRCULATED FOR 90 MINUTES
     Route: 013

REACTIONS (1)
  - Limb discomfort [Unknown]
